FAERS Safety Report 14579054 (Version 1)
Quarter: 2018Q1

REPORT INFORMATION
  Report Type: Spontaneous
  Country: CN (occurrence: CN)
  Receive Date: 20180227
  Receipt Date: 20180227
  Transmission Date: 20180509
  Serious: Yes (Hospitalization, Other)
  Sender: FDA-Public Use
  Company Number: CN-MYLANLABS-2018M1012972

PATIENT
  Age: 8 Year
  Sex: Female

DRUGS (2)
  1. AMPHOTERICIN [Interacting]
     Active Substance: AMPHOTERICIN B
     Indication: PRODUCT USED FOR UNKNOWN INDICATION
     Dosage: UNK
     Route: 065
  2. METHOTREXATE. [Suspect]
     Active Substance: METHOTREXATE
     Indication: ACUTE LYMPHOCYTIC LEUKAEMIA
     Dosage: 5G/M2 AS A PART OF THE FIRST BLOOK-1 REGIMEN; ONE-TENTH OF THE TOTAL METHOTREXATE DOSE BUT NOT MO...
     Route: 042

REACTIONS (7)
  - Secondary hypertension [Recovered/Resolved]
  - Drug interaction [Recovered/Resolved]
  - Toxicity to various agents [Recovered/Resolved]
  - Electrolyte imbalance [Recovered/Resolved]
  - Abdominal pain [Recovered/Resolved]
  - Epilepsy [Recovered/Resolved]
  - Vomiting [Recovered/Resolved]
